FAERS Safety Report 6766093-1 (Version None)
Quarter: 2010Q2

REPORT INFORMATION
  Report Type: 
  Country: None (occurrence: None)
  Receive Date: 20100611
  Receipt Date: 20100531
  Transmission Date: 20101027
  Serious: Yes (Hospitalization, Other)
  Sender: FDA-Public Use
  Company Number: PHHY2010FR19856

PATIENT
  Sex: Male
  Weight: 60 kg

DRUGS (2)
  1. TASIGNA [Suspect]
     Dosage: 800 MG, DAILY
     Route: 048
     Dates: start: 20080801
  2. TAREG [Concomitant]
     Dosage: 160 MG, DAILY
     Route: 048

REACTIONS (10)
  - ANGIOPLASTY [None]
  - ARTERIAL REPAIR [None]
  - ARTERIAL THROMBOSIS LIMB [None]
  - ARTERITIS [None]
  - CAROTID ARTERY STENOSIS [None]
  - ENDARTERECTOMY [None]
  - NEUTROPHILIA [None]
  - PERIPHERAL ISCHAEMIA [None]
  - RASH [None]
  - SKIN ULCER [None]
